FAERS Safety Report 25766804 (Version 1)
Quarter: 2025Q3

REPORT INFORMATION
  Report Type: Spontaneous
  Country: US (occurrence: US)
  Receive Date: 20250905
  Receipt Date: 20250905
  Transmission Date: 20251021
  Serious: Yes (Other)
  Sender: CHATTEM
  Company Number: US-OPELLA-2025OHG026439

PATIENT
  Sex: Male

DRUGS (5)
  1. GOLD BOND ORIGINAL STRENGTH [Suspect]
     Active Substance: MENTHOL
     Indication: Product used for unknown indication
     Route: 065
  2. GLUCOPHAGE 1000 mg tablet [Concomitant]
     Indication: Product used for unknown indication
     Dosage: TAKE 1 TABLET (1,000 MG TOTAL) BY MOUTH EVERY 12 (TWELVE) HOURS.?PATIENT REPORTS LAST DOSE 9/11/2024
     Route: 048
     Dates: start: 20240118, end: 20240911
  3. JANUVIA [Concomitant]
     Active Substance: SITAGLIPTIN PHOSPHATE
     Indication: Product used for unknown indication
     Dosage: TAKE 1 TABLET (100 MG TOTAL) BY MOUTH DAILY.?PATIENT REPORTS LAST DOSE 9/11/2024, HOLDING MEDICATION
     Route: 048
     Dates: start: 20231223, end: 20240911
  4. OZEMPIC 1 mg/dose (4 mg/3 mL) pen injector [Concomitant]
     Indication: Product used for unknown indication
     Dosage: INJECT 1 MG WEEKLY PATIENT NOT TAKING?STRENGTH: 4MG/3ML
     Route: 065
     Dates: start: 20240219, end: 20240918
  5. pantoprazole (PROTONIX) 40 mg tablet [Concomitant]
     Indication: Product used for unknown indication
     Dosage: TAKE 1 TABLET (40 MG TOTAL) BY MOUTH DAILY.?PATIENT REPORTS LAST DOSE 9/11/2024, HOLDING MEDICATION
     Route: 048
     Dates: start: 20240313, end: 20240911

REACTIONS (2)
  - Epithelioid mesothelioma [Unknown]
  - Non-small cell lung cancer [Unknown]

NARRATIVE: CASE EVENT DATE: 20240913
